FAERS Safety Report 21146931 (Version 1)
Quarter: 2022Q3

REPORT INFORMATION
  Report Type: Spontaneous
  Country: FR (occurrence: FR)
  Receive Date: 20220729
  Receipt Date: 20220729
  Transmission Date: 20221026
  Serious: Yes (Hospitalization)
  Sender: FDA-Public Use
  Company Number: None

PATIENT
  Age: 88 Year
  Sex: Male

DRUGS (3)
  1. EPLERENONE [Suspect]
     Active Substance: EPLERENONE
     Indication: Product used for unknown indication
     Dosage: 1 CP IN THE MORNING, OVER THE LONG TERM
     Dates: end: 202202
  2. SACUBITRIL\VALSARTAN [Suspect]
     Active Substance: SACUBITRIL\VALSARTAN
     Indication: Product used for unknown indication
     Dosage: 24 MG/ 26 MG, 1 CP AT MORNING, 1 CP AT EVENING: LONG-TERM
     Dates: end: 202202
  3. PIRIBEDIL [Suspect]
     Active Substance: PIRIBEDIL
     Indication: Parkinson^s disease
     Dosage: 1 CP IN THE MORNING, 1 CP IN THE EVENING
     Dates: end: 202202

REACTIONS (2)
  - Acute kidney injury [Recovering/Resolving]
  - Vertigo [Recovering/Resolving]

NARRATIVE: CASE EVENT DATE: 20220222
